FAERS Safety Report 12630989 (Version 2)
Quarter: 2016Q3

REPORT INFORMATION
  Report Type: Spontaneous
  Country: US (occurrence: US)
  Receive Date: 20160808
  Receipt Date: 20160808
  Transmission Date: 20161109
  Serious: No
  Sender: FDA-Public Use
  Company Number: US-BEH-2015051758

PATIENT
  Sex: Female
  Weight: 56 kg

DRUGS (21)
  1. GARLIC. [Concomitant]
     Active Substance: GARLIC
     Route: 048
  2. EPIPEN [Concomitant]
     Active Substance: EPINEPHRINE
     Dosage: AUTOINJECTOR
     Route: 048
  3. PULMICORT TURBUHALER [Concomitant]
     Active Substance: BUDESONIDE
     Dosage: 1 MG/2 ML AMPULE -NEB (AS NEEDED)
     Route: 055
  4. NEXIUM [Concomitant]
     Active Substance: ESOMEPRAZOLE MAGNESIUM
     Route: 048
  5. OTHER MINERAL SUPPLEMENTS [Concomitant]
     Active Substance: MINERALS
     Dosage: 250-12.5 MG
     Route: 048
  6. FERROUS SULFATE. [Concomitant]
     Active Substance: FERROUS SULFATE
     Dosage: 325(65) MG TAB DAILY 1 TAB
     Route: 048
  7. CLOTRIMAZOLE. [Concomitant]
     Active Substance: CLOTRIMAZOLE
     Route: 048
  8. PROAIR HFA [Concomitant]
     Active Substance: ALBUTEROL SULFATE
     Dosage: 90 MCG 1 PUFF AS NEEDED
     Route: 055
  9. HIZENTRA [Suspect]
     Active Substance: HUMAN IMMUNOGLOBULIN G
     Dosage: 2 GM 10 ML VIAL
     Route: 058
  10. SINGULAIR [Concomitant]
     Active Substance: MONTELUKAST SODIUM
     Route: 048
  11. DIFLUCAN [Concomitant]
     Active Substance: FLUCONAZOLE
     Dosage: 1 TAB IN THE MORNING
     Route: 048
  12. ADVAIR DISKUS [Concomitant]
     Active Substance: FLUTICASONE PROPIONATE\SALMETEROL XINAFOATE
     Dosage: 1 PUFF DAILY 500-50 MCG
     Route: 055
  13. ACETAMINOPHEN. [Concomitant]
     Active Substance: ACETAMINOPHEN
     Dosage: 1 TAB AS DIRECTED
     Route: 048
  14. DIPHENHYDRAMINE. [Concomitant]
     Active Substance: DIPHENHYDRAMINE
     Dosage: AS DIRECTED
     Route: 048
  15. BACTROBAN [Concomitant]
     Active Substance: MUPIROCIN\MUPIROCIN CALCIUM
     Dosage: 2% NASAL
     Route: 061
  16. CITRACAL [Concomitant]
     Active Substance: CALCIUM CITRATE
     Dosage: 600 MG-500  TAB DAILY
     Route: 048
  17. ALLEGRA-D 12 [Concomitant]
     Dosage: 1 TAB 2 TIMES A DAY
     Route: 048
  18. LOESTRIN NOS [Concomitant]
     Active Substance: ETHINYL ESTRADIOL\NORETHINDRONE ACETATE
     Dosage: 1 MG - 20(21)
     Route: 048
  19. MUCINEX [Concomitant]
     Active Substance: GUAIFENESIN
     Dosage: EERY 12 HOURS
     Route: 048
  20. LIDOCAINE. [Concomitant]
     Active Substance: LIDOCAINE
     Dosage: 4% 1 DOSE AS DIRECTED
     Route: 061
  21. HIZENTRA [Suspect]
     Active Substance: HUMAN IMMUNOGLOBULIN G
     Indication: HYPER IGM SYNDROME
     Dosage: 4 G 20 ML VIAL
     Route: 058

REACTIONS (1)
  - Headache [Recovered/Resolved]
